FAERS Safety Report 9920008 (Version 2)
Quarter: 2014Q1

REPORT INFORMATION
  Report Type: Report from Study
  Country: US (occurrence: US)
  Receive Date: 20140224
  Receipt Date: 20140227
  Transmission Date: 20141002
  Serious: Yes (Hospitalization)
  Sender: FDA-Public Use
  Company Number: US-TEVA-463825USA

PATIENT
  Age: 71 Year
  Sex: Male
  Weight: 106.2 kg

DRUGS (5)
  1. DOXORUBICIN [Suspect]
     Dosage: 75MG/M2/180MG, CYCLE 1 REGIMEN 1
     Route: 042
     Dates: start: 20131001, end: 20131003
  2. COMPAZINE [Concomitant]
     Dates: start: 20131003
  3. OXYCODONE [Concomitant]
     Dates: start: 20131003
  4. NEULASTA [Concomitant]
     Dates: start: 20131001
  5. MILK OF MAGNESIA [Concomitant]

REACTIONS (3)
  - Syncope [Recovered/Resolved]
  - Neutropenia [Recovered/Resolved]
  - Thrombocytopenia [Recovered/Resolved]
